FAERS Safety Report 8167078-3 (Version None)
Quarter: 2012Q1

REPORT INFORMATION
  Report Type: 
  Country: None (occurrence: None)
  Receive Date: 20120227
  Receipt Date: 20120216
  Transmission Date: 20120608
  Serious: Yes (Hospitalization, Disabling)
  Sender: FDA-Public Use
  Company Number: CA-JNJFOC-20120209105

PATIENT
  Sex: Female
  Weight: 69 kg

DRUGS (2)
  1. REMICADE [Suspect]
     Indication: PSORIASIS
     Route: 042
     Dates: start: 20091125
  2. METHOTREXATE [Concomitant]
     Route: 065

REACTIONS (2)
  - ROAD TRAFFIC ACCIDENT [None]
  - ARM AMPUTATION [None]
